FAERS Safety Report 6749881-7 (Version None)
Quarter: 2010Q2

REPORT INFORMATION
  Report Type: 
  Country: None (occurrence: None)
  Receive Date: 20100601
  Receipt Date: 20100518
  Transmission Date: 20101027
  Serious: Yes (Hospitalization)
  Sender: FDA-Public Use
  Company Number: ES-ELI_LILLY_AND_COMPANY-ES201005005063

PATIENT
  Sex: Female
  Weight: 65 kg

DRUGS (14)
  1. FORTEO [Suspect]
     Indication: OSTEOPOROSIS
     Dosage: 20 UG, DAILY (1/D)
     Route: 058
     Dates: start: 20080201, end: 20090101
  2. FORTEO [Suspect]
     Dosage: 20 UG, DAILY (1/D)
     Route: 058
     Dates: start: 20090101, end: 20100501
  3. ADALAT [Concomitant]
     Indication: HYPERTENSION
     Dosage: 60 MG, DAILY (1/D)
     Route: 048
  4. ADALAT [Concomitant]
     Dosage: 30 MG, DAILY (1/D)
     Route: 048
  5. METFORMIN HCL [Concomitant]
     Indication: DIABETES MELLITUS
     Dosage: 850 MG, 1 EVERY 12HOURS
     Route: 048
  6. NATECAL D [Concomitant]
     Indication: OSTEOPOROSIS
     Dosage: 60 D/F, EVERY 12HOURS
     Route: 048
  7. COAPROVEL [Concomitant]
     Indication: HYPERTENSION
     Dosage: 300/12.5MG, DAILY (1/D)
     Route: 048
  8. CARDURA [Concomitant]
     Indication: HYPERTENSION
     Dosage: 8 MG, DAILY (1/D)
     Route: 048
  9. NOLOTIL [Concomitant]
     Indication: PAIN
     Dosage: 575 MG, AS NEEDED
     Route: 048
  10. ZOCOR [Concomitant]
     Indication: BLOOD CHOLESTEROL
     Dosage: 20 MG, DAILY (1/D)
     Route: 048
  11. FLUMIL /00082801/ [Concomitant]
     Dosage: 200 MG/1 SACHET, EVERY 8 HRS
     Route: 048
  12. ADIRO [Concomitant]
     Indication: ANTICOAGULANT THERAPY
     Dosage: 100 MG, DAILY (1/D)
     Route: 048
  13. OPIREN [Concomitant]
     Indication: GASTRIC DISORDER
     Dosage: 30 MG, DAILY (1/D)
     Route: 048
  14. FERROGRADUMET [Concomitant]
     Indication: ANAEMIA
     Dosage: 1 SACHET, UNK
     Route: 048
     Dates: start: 20100507

REACTIONS (2)
  - ANAEMIA [None]
  - GASTRIC ULCER [None]
